FAERS Safety Report 8011051-2 (Version None)
Quarter: 2011Q4

REPORT INFORMATION
  Report Type: 
  Country: None (occurrence: None)
  Receive Date: 20111228
  Receipt Date: 20111219
  Transmission Date: 20120403
  Serious: Yes (Other)
  Sender: FDA-Public Use
  Company Number: US-ELI_LILLY_AND_COMPANY-US201111003019

PATIENT
  Sex: Female

DRUGS (17)
  1. AMARYL [Concomitant]
     Dosage: 0.2 MG, UNK
  2. BACTRIM [Concomitant]
     Indication: MASTOIDITIS
  3. VALIUM [Concomitant]
     Indication: BLOOD PRESSURE
     Dosage: 0.5 MG, UNK
  4. OXYGEN [Concomitant]
     Indication: CHRONIC OBSTRUCTIVE PULMONARY DISEASE
  5. CYMBALTA [Suspect]
     Indication: NEURALGIA
     Dosage: 60 MG, QD
  6. CYMBALTA [Suspect]
     Dosage: 30 MG, QD
  7. GABAPENTIN [Concomitant]
  8. LORTAB [Concomitant]
  9. NEURONTIN [Concomitant]
  10. ONDANSETRON [Concomitant]
     Indication: NAUSEA
     Dosage: 4 MG, UNK
  11. AMBIEN [Concomitant]
  12. SYNTHROID [Concomitant]
     Dosage: 0.2 DF, UNK
  13. VICODIN [Concomitant]
  14. OMEPRAZOLE [Concomitant]
     Dosage: 20 MG, UNK
  15. ZYRTEC [Concomitant]
  16. CYMBALTA [Suspect]
     Dosage: 30 MG, QD
     Dates: start: 20111001
  17. ALBUTEROL [Concomitant]
     Dosage: UNK

REACTIONS (12)
  - BLOOD POTASSIUM DECREASED [None]
  - ARRHYTHMIA [None]
  - WEIGHT DECREASED [None]
  - ARTHRALGIA [None]
  - DEHYDRATION [None]
  - CELLULITIS [None]
  - VOMITING [None]
  - INTENTIONAL DRUG MISUSE [None]
  - CHRONIC OBSTRUCTIVE PULMONARY DISEASE [None]
  - DIABETES MELLITUS [None]
  - NAUSEA [None]
  - PAIN [None]
